FAERS Safety Report 5910130-0 (Version None)
Quarter: 2008Q4

REPORT INFORMATION
  Report Type: 
  Country: None (occurrence: None)
  Receive Date: 20081007
  Receipt Date: 20081002
  Transmission Date: 20090506
  Serious: Yes (Other)
  Sender: FDA-Public Use
  Company Number: JP-BAYER-200811976BYL

PATIENT
  Age: 79 Year
  Sex: Female

DRUGS (1)
  1. NEXAVAR [Suspect]
     Indication: LEIOMYOSARCOMA
     Route: 048

REACTIONS (1)
  - ILEUS [None]
